FAERS Safety Report 7949713-5 (Version None)
Quarter: 2011Q4

REPORT INFORMATION
  Report Type: 
  Country: None (occurrence: None)
  Receive Date: 20111130
  Receipt Date: 20111121
  Transmission Date: 20120403
  Serious: Yes (Other)
  Sender: FDA-Public Use
  Company Number: PHHY2011US103163

PATIENT
  Sex: Female

DRUGS (2)
  1. RECLAST [Suspect]
     Route: 042
     Dates: start: 20111104
  2. ONDANSETRON [Suspect]
     Indication: NAUSEA
     Dosage: 3 DF, DAILY
     Route: 048
     Dates: start: 20111107

REACTIONS (16)
  - LIMB INJURY [None]
  - JOINT INJURY [None]
  - GAIT DISTURBANCE [None]
  - HEADACHE [None]
  - HAEMORRHOIDAL HAEMORRHAGE [None]
  - DYSURIA [None]
  - ARTHRALGIA [None]
  - CONSTIPATION [None]
  - ASTHENIA [None]
  - JOINT STIFFNESS [None]
  - PAIN IN EXTREMITY [None]
  - PYREXIA [None]
  - DEHYDRATION [None]
  - BLOOD PRESSURE FLUCTUATION [None]
  - DIZZINESS [None]
  - MYALGIA [None]
